FAERS Safety Report 25409916 (Version 1)
Quarter: 2025Q2

REPORT INFORMATION
  Report Type: Spontaneous
  Country: US (occurrence: US)
  Receive Date: 20250607
  Receipt Date: 20250607
  Transmission Date: 20250716
  Serious: No
  Sender: RIGEL PHARMACEUTICALS
  Company Number: US-RIGEL Pharmaceuticals. INC- 20240900048

PATIENT
  Sex: Female

DRUGS (1)
  1. TAVALISSE [Suspect]
     Active Substance: FOSTAMATINIB
     Indication: Immune thrombocytopenia
     Dosage: 100 MG, BID
     Route: 048
     Dates: start: 20240826

REACTIONS (10)
  - Depressed mood [Unknown]
  - Dry mouth [Unknown]
  - Tongue discolouration [Unknown]
  - Gingival bleeding [Unknown]
  - Contusion [Unknown]
  - Mouth ulceration [Unknown]
  - Tongue ulceration [Unknown]
  - Lip ulceration [Unknown]
  - Rash macular [Unknown]
  - Diarrhoea [Unknown]

NARRATIVE: CASE EVENT DATE: 20240101
